FAERS Safety Report 17960716 (Version 1)
Quarter: 2020Q2

REPORT INFORMATION
  Report Type: Spontaneous
  Country: US (occurrence: US)
  Receive Date: 20200629
  Receipt Date: 20200629
  Transmission Date: 20200714
  Serious: No
  Sender: FDA-Public Use
  Company Number: US-ROCHE-2442359

PATIENT
  Sex: Female

DRUGS (2)
  1. CITALOPRAM HYDROBROMIDE. [Concomitant]
     Active Substance: CITALOPRAM HYDROBROMIDE
  2. XELODA [Suspect]
     Active Substance: CAPECITABINE
     Indication: BREAST CANCER FEMALE
     Dosage: 3 TAB IN MORNING 4 TAB IN EVENING FOLLOWED BY 7 DAY REST
     Route: 048

REACTIONS (7)
  - Diarrhoea [Unknown]
  - Lymphoedema [Unknown]
  - Dry skin [Unknown]
  - Pain in extremity [Unknown]
  - Joint stiffness [Unknown]
  - Gingival ulceration [Unknown]
  - Musculoskeletal stiffness [Unknown]
